FAERS Safety Report 8180266-5 (Version None)
Quarter: 2012Q1

REPORT INFORMATION
  Report Type: 
  Country: None (occurrence: None)
  Receive Date: 20120302
  Receipt Date: 20110805
  Transmission Date: 20120608
  Serious: No
  Sender: FDA-Public Use
  Company Number: US-GLAXOSMITHKLINE-A0939923A

PATIENT
  Age: 55 Year
  Sex: Female

DRUGS (2)
  1. CLOBETASOL PROPIONATE [Suspect]
     Indication: DERMATOSIS
     Route: 061
     Dates: start: 20110712, end: 20110805
  2. INSULIN [Concomitant]

REACTIONS (2)
  - HAIR COLOUR CHANGES [None]
  - BLOOD GLUCOSE INCREASED [None]
